FAERS Safety Report 13946200 (Version 2)
Quarter: 2017Q4

REPORT INFORMATION
  Report Type: Report from Study
  Country: FR (occurrence: FR)
  Receive Date: 20170907
  Receipt Date: 20171012
  Transmission Date: 20180320
  Serious: Yes (Death, Hospitalization)
  Sender: FDA-Public Use
  Company Number: FR-EXELIXIS-XL18417010403

PATIENT
  Age: 60 Year
  Sex: Female
  Weight: 86 kg

DRUGS (13)
  1. ALGOSTERIL [Concomitant]
  2. XL184 [Suspect]
     Active Substance: CABOZANTINIB
     Dosage: 20 MG, QD
     Route: 048
     Dates: start: 20170511, end: 20170827
  3. ZOLPIDEM [Concomitant]
     Active Substance: ZOLPIDEM\ZOLPIDEM TARTRATE
  4. OXAZEPAM. [Concomitant]
     Active Substance: OXAZEPAM
  5. SERTRALINE [Concomitant]
     Active Substance: SERTRALINE HYDROCHLORIDE
  6. INTRASITE [Concomitant]
  7. XL184 [Suspect]
     Active Substance: CABOZANTINIB
     Indication: HEPATOCELLULAR CARCINOMA
     Dosage: 60 MG, QD
     Route: 048
     Dates: start: 20170116, end: 2017
  8. LANTUS [Concomitant]
     Active Substance: INSULIN GLARGINE
  9. BIPROFENID [Concomitant]
     Active Substance: KETOPROFEN
  10. NOVORAPID [Concomitant]
     Active Substance: INSULIN ASPART
  11. TRAMADOL. [Concomitant]
     Active Substance: TRAMADOL
  12. PREGABALINE [Concomitant]
     Active Substance: PREGABALIN
  13. QUETIAPINE. [Concomitant]
     Active Substance: QUETIAPINE

REACTIONS (3)
  - Disorientation [Not Recovered/Not Resolved]
  - Pleurisy [Fatal]
  - Incoherent [Not Recovered/Not Resolved]

NARRATIVE: CASE EVENT DATE: 20170825
